FAERS Safety Report 9921713 (Version 1)
Quarter: 2014Q1

REPORT INFORMATION
  Report Type: Report from Study
  Country: US (occurrence: US)
  Receive Date: 20140225
  Receipt Date: 20140225
  Transmission Date: 20141002
  Serious: Yes (Death)
  Sender: FDA-Public Use
  Company Number: US-ROCHE-1334702

PATIENT
  Sex: Female

DRUGS (5)
  1. BEVACIZUMAB [Suspect]
     Indication: UTERINE CANCER
     Route: 042
     Dates: start: 20110629
  2. BEVACIZUMAB [Suspect]
     Indication: ENDOMETRIAL CANCER
     Route: 042
     Dates: start: 20120111
  3. BEVACIZUMAB [Suspect]
     Route: 042
     Dates: start: 20120208
  4. BEVACIZUMAB [Suspect]
     Route: 042
     Dates: start: 20120307
  5. TAXOL [Concomitant]
     Route: 065
     Dates: start: 201106

REACTIONS (3)
  - Death [Fatal]
  - Disease progression [Unknown]
  - Off label use [Unknown]
